FAERS Safety Report 6067198-3 (Version None)
Quarter: 2009Q1

REPORT INFORMATION
  Report Type: 
  Country: None (occurrence: None)
  Receive Date: 20090205
  Receipt Date: 20090126
  Transmission Date: 20090719
  Serious: Yes (Hospitalization)
  Sender: FDA-Public Use
  Company Number: PHHY2009BR02793

PATIENT
  Sex: Female

DRUGS (6)
  1. DIOVAN HCT [Suspect]
     Dosage: 1 TABLET  DAILY
     Route: 048
  2. AMLODIPINE BESYLATE [Concomitant]
  3. SUSTRATE [Concomitant]
  4. BENERVA [Concomitant]
  5. RANITIDINE [Concomitant]
  6. PANTOPRAZOLE [Concomitant]

REACTIONS (7)
  - BLOOD PRESSURE DECREASED [None]
  - BLOOD PRESSURE INCREASED [None]
  - BRAIN HYPOXIA [None]
  - DEHYDRATION [None]
  - DYSPNOEA [None]
  - OEDEMA [None]
  - TONGUE DISORDER [None]
